FAERS Safety Report 8113425-8 (Version None)
Quarter: 2012Q1

REPORT INFORMATION
  Report Type: 
  Country: None (occurrence: None)
  Receive Date: 20120203
  Receipt Date: 20120201
  Transmission Date: 20120608
  Serious: Yes (Life-Threatening, Hospitalization, Other)
  Sender: FDA-Public Use
  Company Number: PHHY2012DE006604

PATIENT
  Sex: Male
  Weight: 87 kg

DRUGS (12)
  1. EXFORGE HCT [Suspect]
     Route: 048
     Dates: end: 20081218
  2. EXFORGE HCT [Suspect]
     Dosage: 1 DF, PER DAY
     Route: 048
     Dates: start: 20081218, end: 20110707
  3. BETA BLOCKING AGENTS [Concomitant]
  4. RASILEZ [Suspect]
     Indication: HYPERTENSION
     Route: 048
     Dates: end: 20081218
  5. ALLOPURINOL [Concomitant]
     Indication: HYPERURICAEMIA
     Dosage: 100 MG PER DAY
     Route: 048
     Dates: start: 20000530
  6. ASPIRIN [Concomitant]
     Indication: PLATELET AGGREGATION INHIBITION
     Dosage: 100 MG PER DAY
     Route: 048
     Dates: start: 20000530
  7. ACE INHIBITOR NOS [Concomitant]
  8. CALCIUM CHANNEL BLOCKERS [Concomitant]
     Dates: end: 20100817
  9. RASILEZ [Suspect]
     Dosage: 300 MG PER DAY
     Route: 048
     Dates: start: 20081218, end: 20110728
  10. STATINS [Concomitant]
  11. DIURETICS [Concomitant]
     Dates: start: 20100305, end: 20100817
  12. SIMVASTATIN [Concomitant]
     Indication: HYPERLIPIDAEMIA
     Dosage: 10 MG PER DAY
     Route: 048
     Dates: start: 20100202

REACTIONS (6)
  - TACHYCARDIA [None]
  - BLOOD CREATININE INCREASED [None]
  - BLOOD PRESSURE DECREASED [None]
  - COLON CANCER [None]
  - RENAL FAILURE [None]
  - BLOOD TRIGLYCERIDES INCREASED [None]
